FAERS Safety Report 6456254-3 (Version None)
Quarter: 2009Q4

REPORT INFORMATION
  Report Type: 
  Country: None (occurrence: None)
  Receive Date: 20091124
  Receipt Date: 20091124
  Transmission Date: 20100525
  Serious: No
  Sender: FDA-Public Use
  Company Number: None

PATIENT
  Sex: Male

DRUGS (2)
  1. MINOCYCLINE HCL [Suspect]
     Indication: FOLLICULITIS
     Dosage: 100MG ONCE DAILY PO
     Route: 048
     Dates: start: 20030801, end: 20050401
  2. SOMYCIN 500MG [Suspect]
     Indication: FOLLICULITIS
     Dosage: 500MG ONCE PO BID PO
     Route: 048
     Dates: start: 20050401, end: 20060601

REACTIONS (4)
  - NAUSEA [None]
  - NO THERAPEUTIC RESPONSE [None]
  - PRODUCT SUBSTITUTION ISSUE [None]
  - VOMITING [None]
